FAERS Safety Report 9494869 (Version 1)
Quarter: 2013Q3

REPORT INFORMATION
  Report Type: Spontaneous
  Country: IN (occurrence: IN)
  Receive Date: 20130903
  Receipt Date: 20130903
  Transmission Date: 20140515
  Serious: Yes (Other)
  Sender: FDA-Public Use
  Company Number: IN-MERCK-1309IND000355

PATIENT
  Age: 72 Year
  Sex: 0

DRUGS (1)
  1. JANUVIA [Suspect]
     Dosage: 100 MG, QD
     Route: 048

REACTIONS (3)
  - Neoplasm malignant [Unknown]
  - Bone disorder [Unknown]
  - Decreased appetite [Unknown]
